FAERS Safety Report 9559721 (Version 2)
Quarter: 2013Q3

REPORT INFORMATION
  Report Type: Report from Study
  Country: US (occurrence: US)
  Receive Date: 20130927
  Receipt Date: 20130927
  Transmission Date: 20140515
  Serious: Yes (Other)
  Sender: FDA-Public Use
  Company Number: PHEH2013US011880

PATIENT
  Age: 59 Year
  Sex: Female
  Weight: 48.53 kg

DRUGS (6)
  1. GILENYA [Suspect]
     Indication: MULTIPLE SCLEROSIS
     Dosage: 0.5 MG, QD
     Route: 048
     Dates: start: 20130524
  2. CELEXA [Concomitant]
     Dates: start: 20130528
  3. COREG [Concomitant]
     Dates: start: 20130528
  4. TRAZODONE [Concomitant]
     Dates: start: 20130528
  5. TIZANIDINE [Concomitant]
     Dates: start: 20130528
  6. BETA BLOCKING AGENTS [Concomitant]

REACTIONS (12)
  - Heart rate increased [Unknown]
  - Feeling abnormal [Not Recovered/Not Resolved]
  - Sluggishness [Not Recovered/Not Resolved]
  - Hypertonia [Unknown]
  - Somnolence [Not Recovered/Not Resolved]
  - Fatigue [Not Recovered/Not Resolved]
  - Muscle spasms [Not Recovered/Not Resolved]
  - Malaise [Not Recovered/Not Resolved]
  - Chest discomfort [Not Recovered/Not Resolved]
  - Dyspnoea [Unknown]
  - Asthenia [Not Recovered/Not Resolved]
  - Eye pain [Unknown]
